FAERS Safety Report 4972985-6 (Version None)
Quarter: 2006Q2

REPORT INFORMATION
  Report Type: 
  Country: None (occurrence: None)
  Receive Date: 20060414
  Receipt Date: 20060410
  Transmission Date: 20061013
  Serious: Yes (Other)
  Sender: FDA-Public Use
  Company Number: US-GLAXOSMITHKLINE-A0601632A

PATIENT
  Age: 75 Year
  Sex: Female

DRUGS (4)
  1. FLONASE [Suspect]
     Indication: MULTIPLE ALLERGIES
     Route: 045
     Dates: end: 20060201
  2. NASONEX [Suspect]
     Indication: MULTIPLE ALLERGIES
     Route: 045
     Dates: start: 20060201
  3. SYNTHROID [Concomitant]
     Dates: end: 20060201
  4. LEVOTHYROXINE SODIUM [Concomitant]
     Dates: start: 20060201

REACTIONS (3)
  - COMA [None]
  - OVERDOSE [None]
  - SYNCOPE [None]
